FAERS Safety Report 9777576 (Version 1)
Quarter: 2013Q4

REPORT INFORMATION
  Report Type: Report from Study
  Country: GB (occurrence: GB)
  Receive Date: 20131222
  Receipt Date: 20131222
  Transmission Date: 20140711
  Serious: Yes (Hospitalization)
  Sender: FDA-Public Use
  Company Number: GB-AMGEN-GBRCT2013089468

PATIENT
  Age: 55 Year
  Sex: Male
  Weight: 117 kg

DRUGS (5)
  1. ETANERCEPT [Suspect]
     Indication: PRODUCT USED FOR UNKNOWN INDICATION
     Dosage: 50 MG, QWK
     Route: 065
     Dates: start: 20120203
  2. ETODOLAC [Concomitant]
     Dosage: UNK
     Dates: start: 20050803
  3. XALATAN [Concomitant]
     Dosage: UNK
     Dates: start: 20121101
  4. ASPIRIN [Concomitant]
     Dosage: UNK
     Dates: start: 20130318
  5. LATANOPROST [Concomitant]
     Dosage: UNK
     Dates: start: 20130318

REACTIONS (1)
  - Supraventricular tachycardia [Recovered/Resolved]
